FAERS Safety Report 10384897 (Version 1)
Quarter: 2014Q1

REPORT INFORMATION
  Report Type: Spontaneous
  Country: US (occurrence: None)
  Receive Date: 20140306
  Receipt Date: 20140306
  Transmission Date: 20141002
  Serious: Yes (Hospitalization)
  Sender: FDA-Public Use
  Company Number: 163-21880-13042819

PATIENT
  Age: 76 Year
  Sex: Male

DRUGS (5)
  1. REVLIMID (LENALIDOMIDE) (5 MILLIGRAM, CAPSULES) [Suspect]
     Indication: PLASMA CELL MYELOMA
     Dates: start: 200811, end: 2008
  2. COUMADIN (WARFARIN SODIUM) [Concomitant]
  3. FLOMAX (TAMSULOSIN HYDROCHLORIDE) [Concomitant]
  4. DECADRON (DEXAMETHASONE) [Concomitant]
  5. IMODIUM (LOPERAMIDE HYDROCHLORIDE) [Concomitant]

REACTIONS (1)
  - Thrombosis [None]
